FAERS Safety Report 10784748 (Version 1)
Quarter: 2015Q1

REPORT INFORMATION
  Report Type: Spontaneous
  Country: SE (occurrence: None)
  Receive Date: 20150209
  Receipt Date: 20150209
  Transmission Date: 20150721
  Serious: Yes (Disabling, Other)
  Sender: FDA-Public Use
  Company Number: 2015-10615

PATIENT
  Age: 82 Year
  Sex: Female

DRUGS (4)
  1. EYLEA [Suspect]
     Active Substance: AFLIBERCEPT
     Indication: AGE-RELATED MACULAR DEGENERATION
     Dosage: 2 MG, LEFT EYE, INTRAOCULAR
     Route: 031
     Dates: start: 20141218, end: 20141218
  2. DICLOFENAC (DICLOFEANAC) [Suspect]
     Active Substance: DICLOFENAC
  3. TAMOXIFEN (TAMOXIFEN) [Concomitant]
  4. LOSARTAN (LOSARTAN) [Suspect]
     Active Substance: LOSARTAN

REACTIONS (1)
  - Macular rupture [None]

NARRATIVE: CASE EVENT DATE: 20150120
